FAERS Safety Report 6779582-0 (Version None)
Quarter: 2010Q2

REPORT INFORMATION
  Report Type: 
  Country: None (occurrence: None)
  Receive Date: 20100618
  Receipt Date: 20100614
  Transmission Date: 20101027
  Serious: Yes (Death)
  Sender: FDA-Public Use
  Company Number: A0864736A

PATIENT
  Age: 57 Year
  Sex: Male

DRUGS (1)
  1. PROMACTA [Suspect]
     Indication: IDIOPATHIC THROMBOCYTOPENIC PURPURA
     Dosage: 50MG PER DAY
     Dates: start: 20100110, end: 20100310

REACTIONS (2)
  - PANCYTOPENIA [None]
  - THROMBOCYTOPENIA [None]
